FAERS Safety Report 5914196-3 (Version None)
Quarter: 2008Q4

REPORT INFORMATION
  Report Type: 
  Country: None (occurrence: None)
  Receive Date: 20081009
  Receipt Date: 20080929
  Transmission Date: 20090506
  Serious: Yes (Hospitalization, Other)
  Sender: FDA-Public Use
  Company Number: GB-PFIZER INC-2008075237

PATIENT
  Age: 30 Year
  Sex: Female
  Weight: 72 kg

DRUGS (9)
  1. METRONIDAZOLE [Suspect]
     Route: 042
  2. SODIUM CHLORIDE COMPOUND INJECTION [Suspect]
     Route: 042
  3. ACETAMINOPHEN [Suspect]
     Indication: PAIN
  4. GENTAMICIN [Suspect]
     Route: 042
  5. MORPHINE SULFATE INJ [Suspect]
     Route: 048
  6. POTASSIUM CHLORIDE [Suspect]
     Route: 042
  7. SODIUM LACTATE [Suspect]
     Route: 042
  8. CALCIUM CHLORIDE [Suspect]
     Route: 042
  9. CHLORPHENIRAMINE MALEATE [Suspect]
     Indication: PRURITUS
     Route: 042

REACTIONS (16)
  - BLOOD CALCIUM DECREASED [None]
  - CONDITION AGGRAVATED [None]
  - DECREASED APPETITE [None]
  - DIET REFUSAL [None]
  - DRUG INEFFECTIVE [None]
  - EYELID OEDEMA [None]
  - FACE OEDEMA [None]
  - GENERALISED OEDEMA [None]
  - HAEMOGLOBIN DECREASED [None]
  - HYPOPROTEINAEMIA [None]
  - INSOMNIA [None]
  - LARYNGEAL OEDEMA [None]
  - PREMATURE LABOUR [None]
  - PUSTULAR PSORIASIS [None]
  - SOMNOLENCE [None]
  - WHITE BLOOD CELL COUNT INCREASED [None]
